FAERS Safety Report 25591066 (Version 1)
Quarter: 2025Q3

REPORT INFORMATION
  Report Type: Spontaneous
  Country: US (occurrence: US)
  Receive Date: 20250722
  Receipt Date: 20250722
  Transmission Date: 20251021
  Serious: No
  Sender: ROCHE
  Company Number: US-ROCHE-10000343338

PATIENT
  Sex: Female

DRUGS (1)
  1. ENTRECTINIB [Suspect]
     Active Substance: ENTRECTINIB
     Indication: Product used for unknown indication
     Route: 065

REACTIONS (10)
  - Weight decreased [Unknown]
  - Dizziness [Unknown]
  - Balance disorder [Unknown]
  - Weight increased [Unknown]
  - Joint swelling [Unknown]
  - Brain fog [Unknown]
  - Drug withdrawal syndrome [Unknown]
  - Pain [Unknown]
  - Total lung capacity decreased [Unknown]
  - Scar [Unknown]
